FAERS Safety Report 20802212 (Version 1)
Quarter: 2022Q2

REPORT INFORMATION
  Report Type: Spontaneous
  Country: US (occurrence: US)
  Receive Date: 20220509
  Receipt Date: 20220509
  Transmission Date: 20220721
  Serious: No
  Sender: FDA-Public Use
  Company Number: US-UCBSA-2022012188

PATIENT
  Sex: Female

DRUGS (1)
  1. CIMZIA [Suspect]
     Active Substance: CERTOLIZUMAB PEGOL
     Indication: Psoriasis
     Dosage: 200 MILLIGRAM, EV 2 WEEKS(QOW)
     Route: 058
     Dates: start: 202103

REACTIONS (7)
  - Psoriasis [Unknown]
  - Arthralgia [Unknown]
  - Sinusitis [Unknown]
  - Animal bite [Unknown]
  - Rabies [Unknown]
  - Pain [Unknown]
  - Therapy cessation [Unknown]
